FAERS Safety Report 13839653 (Version 1)
Quarter: 2017Q3

REPORT INFORMATION
  Report Type: Spontaneous
  Country: US (occurrence: US)
  Receive Date: 20170807
  Receipt Date: 20170807
  Transmission Date: 20171127
  Serious: No
  Sender: FDA-Public Use
  Company Number: US-XTTRIUM LABORATORIES, INC-2024266

PATIENT
  Age: 67 Year
  Sex: Female
  Weight: 67.73 kg

DRUGS (2)
  1. CHLORHEXIDINE GLUCONATE. [Suspect]
     Active Substance: CHLORHEXIDINE GLUCONATE
     Indication: PERIODONTITIS
     Route: 002
     Dates: start: 20170711
  2. PARADONTAX [Concomitant]

REACTIONS (6)
  - Throat irritation [Unknown]
  - Lip pain [Unknown]
  - Pain [Unknown]
  - Lip swelling [Unknown]
  - Glossodynia [Unknown]
  - Tongue discomfort [Unknown]

NARRATIVE: CASE EVENT DATE: 20170711
